FAERS Safety Report 11549960 (Version 3)
Quarter: 2015Q4

REPORT INFORMATION
  Report Type: Report from Study
  Country: IT (occurrence: IT)
  Receive Date: 20150924
  Receipt Date: 20151110
  Transmission Date: 20160304
  Serious: Yes (Hospitalization)
  Sender: FDA-Public Use
  Company Number: IT-CELGENE-ITA-2015072769

PATIENT
  Age: 79 Year
  Sex: Male
  Weight: 64 kg

DRUGS (26)
  1. CC-4047 [Suspect]
     Active Substance: POMALIDOMIDE
     Route: 048
     Dates: start: 20150917
  2. ZINNAT [Concomitant]
     Active Substance: CEFUROXIME AXETIL
     Indication: INFECTION
     Route: 065
     Dates: start: 20150629, end: 20150705
  3. MODURETIC 5-50 [Concomitant]
     Active Substance: AMILORIDE HYDROCHLORIDE\HYDROCHLOROTHIAZIDE
     Indication: RENAL FAILURE
     Route: 065
     Dates: start: 20150707, end: 20150708
  4. FLUCONAZOLE. [Concomitant]
     Active Substance: FLUCONAZOLE
     Indication: ORAL CANDIDIASIS
     Route: 065
     Dates: start: 201507, end: 20150817
  5. LANSOPRAZOLE. [Concomitant]
     Active Substance: LANSOPRAZOLE
     Indication: PROPHYLAXIS
     Dosage: 30 MILLIGRAM
     Route: 048
     Dates: start: 200703
  6. LASIX [Concomitant]
     Active Substance: FUROSEMIDE
     Indication: RENAL FAILURE
     Dosage: 1/2 TABLET
     Route: 048
     Dates: start: 20150508, end: 20150604
  7. DIBASE [Concomitant]
     Active Substance: CHOLECALCIFEROL
     Indication: VITAMIN SUPPLEMENTATION
     Route: 065
     Dates: start: 20150625
  8. DEXAMETHASONE. [Suspect]
     Active Substance: DEXAMETHASONE
     Route: 048
     Dates: start: 20150623, end: 20150714
  9. CARDIOASPIRIN [Concomitant]
     Active Substance: ASPIRIN
     Indication: THROMBOSIS PROPHYLAXIS
     Route: 048
     Dates: start: 200703, end: 20150714
  10. LASIX [Concomitant]
     Active Substance: FUROSEMIDE
     Route: 048
     Dates: start: 20150818
  11. ZARZIO [Concomitant]
     Active Substance: FILGRASTIM
     Indication: NEUTROPENIA
     Dosage: 1 VIAL
     Route: 065
     Dates: start: 20150604, end: 20150624
  12. ERYTHROPOIETIN [Concomitant]
     Active Substance: ERYTHROPOIETIN
     Indication: ANAEMIA
     Dosage: 5714.2857 IU (INTERNATIONAL UNIT)
     Route: 058
     Dates: start: 20150423
  13. LEVOXACIN [Concomitant]
     Active Substance: LEVOFLOXACIN
     Indication: INFECTION PROPHYLAXIS
     Route: 065
     Dates: start: 201507, end: 20150805
  14. ALLOPURINOL. [Concomitant]
     Active Substance: ALLOPURINOL
     Indication: PROPHYLAXIS
     Route: 065
     Dates: start: 20150618
  15. CC-4047 [Suspect]
     Active Substance: POMALIDOMIDE
     Route: 048
     Dates: start: 20150625, end: 20150713
  16. LASIX [Concomitant]
     Active Substance: FUROSEMIDE
     Route: 048
     Dates: start: 20150806, end: 20150817
  17. CYPROXIN [Concomitant]
     Indication: PYREXIA
     Dosage: 500 MILLIGRAM
     Route: 048
     Dates: start: 20150603
  18. ZARZIO [Concomitant]
     Active Substance: FILGRASTIM
     Route: 065
     Dates: start: 20150709, end: 20150711
  19. CC-4047 [Suspect]
     Active Substance: POMALIDOMIDE
     Indication: PLASMA CELL MYELOMA
     Route: 048
     Dates: start: 20150423, end: 20150513
  20. DEXAMETHASONE. [Suspect]
     Active Substance: DEXAMETHASONE
     Indication: PLASMA CELL MYELOMA
     Route: 048
     Dates: start: 20150423, end: 20150513
  21. FOLINA [Concomitant]
     Active Substance: FOLIC ACID
     Indication: VITAMIN SUPPLEMENTATION
     Dosage: 5 MILLIGRAM
     Route: 048
     Dates: start: 201503
  22. LAEVOLAC [Concomitant]
     Active Substance: LACTULOSE
     Indication: CONSTIPATION
     Dosage: 1 SPOON
     Route: 048
     Dates: start: 20150430
  23. DEXAMETHASONE. [Suspect]
     Active Substance: DEXAMETHASONE
     Dosage: 500 MILLIGRAM
     Route: 048
     Dates: start: 20150917
  24. LANOXIN [Concomitant]
     Active Substance: DIGOXIN
     Indication: CARDIAC FAILURE CHRONIC
     Dosage: .0625 MILLIGRAM
     Route: 048
     Dates: start: 201409
  25. PROSTIDE [Concomitant]
     Indication: RENAL FAILURE
     Dosage: 5 MILLIGRAM
     Route: 048
     Dates: start: 200703
  26. CARDIOASPIRIN [Concomitant]
     Active Substance: ASPIRIN
     Route: 048
     Dates: start: 20150625

REACTIONS (6)
  - Hypoalbuminaemia [Recovered/Resolved]
  - Hyponatraemia [Recovered/Resolved]
  - Pyrexia [Recovered/Resolved]
  - Cytomegalovirus infection [Recovered/Resolved]
  - Hypogammaglobulinaemia [Recovered/Resolved]
  - Thrombocytopenia [Recovered/Resolved]

NARRATIVE: CASE EVENT DATE: 20150713
